FAERS Safety Report 8547954-X (Version None)
Quarter: 2012Q3

REPORT INFORMATION
  Report Type: 
  Country: None (occurrence: None)
  Receive Date: 20120729
  Receipt Date: 20120718
  Transmission Date: 20120928
  Serious: Yes (Disabling)
  Sender: FDA-Public Use
  Company Number: GB-TEVA-349187ISR

PATIENT
  Age: 61 Year
  Sex: Female

DRUGS (1)
  1. TRAMADOL HYDROCHLORIDE [Suspect]
     Route: 002
     Dates: start: 20110309, end: 20120611

REACTIONS (2)
  - WHEEZING [None]
  - ASTHMA LATE ONSET [None]
